FAERS Safety Report 9701621 (Version 2)
Quarter: 2013Q4

REPORT INFORMATION
  Report Type: Spontaneous
  Country: US (occurrence: US)
  Receive Date: 20131119
  Receipt Date: 20131119
  Transmission Date: 20140711
  Serious: No
  Sender: FDA-Public Use
  Company Number: -ORACLE-2011S1000043

PATIENT
  Age: 78 Year
  Sex: Male

DRUGS (15)
  1. KRYSTEXXA INJECTION [Suspect]
     Indication: GOUT
     Route: 042
     Dates: start: 20110608, end: 20110608
  2. KRYSTEXXA INJECTION [Suspect]
     Indication: GOUT
     Route: 042
     Dates: start: 20110624, end: 20110624
  3. KRYSTEXXA INJECTION [Suspect]
     Indication: GOUT
     Route: 042
     Dates: start: 20110706, end: 20110706
  4. SOLU MEDROL [Concomitant]
     Indication: PREMEDICATION
     Route: 042
     Dates: start: 20110608, end: 20110608
  5. SOLU MEDROL [Concomitant]
     Indication: PREMEDICATION
     Route: 042
     Dates: start: 20110624, end: 20110624
  6. SOLU MEDROL [Concomitant]
     Indication: PREMEDICATION
     Route: 042
     Dates: start: 20110706, end: 20110706
  7. TYLENOL /00020001/ [Concomitant]
     Indication: PREMEDICATION
     Route: 048
     Dates: start: 20110608, end: 20110608
  8. TYLENOL /00020001/ [Concomitant]
     Indication: PREMEDICATION
     Route: 048
     Dates: start: 20110624, end: 20110624
  9. TYLENOL /00020001/ [Concomitant]
     Indication: PREMEDICATION
     Route: 048
     Dates: start: 20110706, end: 20110706
  10. BENADRYL /01563701/ [Concomitant]
     Indication: PREMEDICATION
     Route: 048
     Dates: start: 20110608, end: 20110608
  11. BENADRYL /01563701/ [Concomitant]
     Indication: PREMEDICATION
     Route: 048
     Dates: start: 20110624, end: 20110624
  12. BENADRYL /01563701/ [Concomitant]
     Indication: PREMEDICATION
     Route: 048
     Dates: start: 20110706, end: 20110706
  13. COLCRYS [Concomitant]
     Indication: PRODUCT USED FOR UNKNOWN INDICATION
     Route: 048
     Dates: start: 20101223, end: 20110511
  14. GLYBURIDE/METFORMIN [Concomitant]
     Indication: PRODUCT USED FOR UNKNOWN INDICATION
     Route: 048
     Dates: start: 20110302
  15. CARVEDILOL [Concomitant]
     Indication: PRODUCT USED FOR UNKNOWN INDICATION
     Route: 048
     Dates: start: 20110302

REACTIONS (2)
  - Urticaria [Recovered/Resolved]
  - Dizziness [Recovered/Resolved]
